FAERS Safety Report 7817458-8 (Version None)
Quarter: 2011Q4

REPORT INFORMATION
  Report Type: 
  Country: None (occurrence: None)
  Receive Date: 20111017
  Receipt Date: 20111003
  Transmission Date: 20120403
  Serious: Yes (Death, Hospitalization)
  Sender: FDA-Public Use
  Company Number: GB-ROCHE-738985

PATIENT
  Age: 49 Year
  Sex: Male

DRUGS (6)
  1. MYCOPHENOLATE MOFETIL [Suspect]
     Indication: IMMUNOSUPPRESSION
     Route: 065
  2. PREDNISOLONE [Suspect]
     Indication: IMMUNOSUPPRESSION
     Route: 065
  3. DEXAMETHASONE [Suspect]
     Indication: IMMUNOSUPPRESSION
     Route: 065
  4. COTRIM [Concomitant]
     Indication: PROPHYLAXIS
     Route: 042
  5. TACROLIMUS [Suspect]
     Indication: IMMUNOSUPPRESSION
     Route: 065
     Dates: start: 20030101, end: 20080101
  6. COTRIM [Suspect]
     Indication: IMMUNOSUPPRESSION
     Route: 065

REACTIONS (7)
  - DECREASED APPETITE [None]
  - UPPER MOTOR NEURONE LESION [None]
  - GRAND MAL CONVULSION [None]
  - HEMIPARESIS [None]
  - LETHARGY [None]
  - TOXOPLASMOSIS [None]
  - PNEUMONIA ASPIRATION [None]
